FAERS Safety Report 5161661-5 (Version None)
Quarter: 2006Q4

REPORT INFORMATION
  Report Type: 
  Country: None (occurrence: None)
  Receive Date: 20061130
  Receipt Date: 20060324
  Transmission Date: 20070319
  Serious: No
  Sender: FDA-Public Use
  Company Number: US-BRISTOL-MYERS SQUIBB COMPANY-13336003

PATIENT
  Age: 68 Year
  Sex: Male

DRUGS (5)
  1. METFORMIN HCL [Suspect]
     Indication: DIABETES MELLITUS NON-INSULIN-DEPENDENT
     Route: 048
     Dates: start: 20050627
  2. CLONAZEPAM [Concomitant]
  3. NAPROXEN [Concomitant]
  4. VERAPAMIL [Concomitant]
  5. SPIRONOLACTONE [Concomitant]

REACTIONS (1)
  - OEDEMA PERIPHERAL [None]
